FAERS Safety Report 8795822 (Version 2)
Quarter: 2013Q1

REPORT INFORMATION
  Report Type: Spontaneous
  Country: US (occurrence: US)
  Receive Date: 20120919
  Receipt Date: 20130308
  Transmission Date: 20140127
  Serious: Yes (Disabling, Other)
  Sender: FDA-Public Use
  Company Number: US-TEVA-358976USA

PATIENT
  Sex: Female

DRUGS (1)
  1. PARAGARD 380A [Suspect]

REACTIONS (7)
  - Uterine perforation [Unknown]
  - Uterine fistula [Unknown]
  - Colonic fistula [Unknown]
  - Device dislocation [Unknown]
  - Abdominal pain [Unknown]
  - Infection [Unknown]
  - Abscess [Unknown]
